FAERS Safety Report 8244728-4 (Version None)
Quarter: 2012Q1

REPORT INFORMATION
  Report Type: 
  Country: None (occurrence: None)
  Receive Date: 20120329
  Receipt Date: 20110513
  Transmission Date: 20120608
  Serious: No
  Sender: FDA-Public Use
  Company Number: US-MYLANLABS-2011S1003969

PATIENT
  Age: 67 Year
  Sex: Female
  Weight: 51.71 kg

DRUGS (4)
  1. FENTANYL-100 [Suspect]
     Indication: BACK PAIN
     Dosage: CHANGED Q 72 HOURS.
     Route: 062
     Dates: start: 20101215, end: 20110101
  2. VICODIN [Concomitant]
  3. CELEXA [Concomitant]
  4. ALPRAZOLAM [Concomitant]

REACTIONS (4)
  - DRUG HYPERSENSITIVITY [None]
  - OEDEMA PERIPHERAL [None]
  - SENSATION OF HEAVINESS [None]
  - PRURITUS [None]
